FAERS Safety Report 7213009-X (Version None)
Quarter: 2011Q1

REPORT INFORMATION
  Report Type: 
  Country: None (occurrence: None)
  Receive Date: 20110106
  Receipt Date: 20101221
  Transmission Date: 20110831
  Serious: Yes (Hospitalization, Congenital Anomaly)
  Sender: FDA-Public Use
  Company Number: A0903365A

PATIENT
  Sex: Male
  Weight: 2.8 kg

DRUGS (2)
  1. TRAZODONE HCL [Concomitant]
  2. PAXIL [Suspect]
     Indication: DEPRESSION

REACTIONS (8)
  - COARCTATION OF THE AORTA [None]
  - BICUSPID AORTIC VALVE [None]
  - CYTOGENETIC ABNORMALITY [None]
  - DRUG EXPOSURE DURING PREGNANCY [None]
  - PATENT DUCTUS ARTERIOSUS [None]
  - ATRIAL SEPTAL DEFECT [None]
  - PULMONARY ARTERIAL HYPERTENSION [None]
  - HYPOPLASTIC LEFT HEART SYNDROME [None]
